FAERS Safety Report 11956901 (Version 1)
Quarter: 2016Q1

REPORT INFORMATION
  Report Type: Spontaneous
  Country: DE (occurrence: DE)
  Receive Date: 20160126
  Receipt Date: 20160126
  Transmission Date: 20160526
  Serious: Yes (Hospitalization)
  Sender: FDA-Public Use
  Company Number: DE-009507513-1601DEU007544

PATIENT
  Age: 52 Year
  Sex: Male

DRUGS (2)
  1. KEYTRUDA [Suspect]
     Active Substance: PEMBROLIZUMAB
     Indication: METASTATIC MALIGNANT MELANOMA
     Dosage: UNK, Q3W
     Route: 042
     Dates: start: 201509, end: 201601
  2. IPILIMUMAB [Concomitant]
     Active Substance: IPILIMUMAB
     Indication: METASTATIC MALIGNANT MELANOMA
     Dosage: UNK
     Dates: start: 201509, end: 2015

REACTIONS (5)
  - Hormone level abnormal [Recovering/Resolving]
  - Chromaturia [Recovering/Resolving]
  - Hypophysitis [Recovering/Resolving]
  - Fatigue [Recovering/Resolving]
  - Blood cortisol decreased [Recovering/Resolving]

NARRATIVE: CASE EVENT DATE: 201601
